FAERS Safety Report 5160681-4 (Version None)
Quarter: 2006Q4

REPORT INFORMATION
  Report Type: 
  Country: None (occurrence: None)
  Receive Date: 20061121
  Receipt Date: 20061106
  Transmission Date: 20070319
  Serious: Yes (Other)
  Sender: FDA-Public Use
  Company Number: 2006AP000892

PATIENT
  Age: 65 Year
  Sex: Female

DRUGS (12)
  1. CLOPIDOGREL [Suspect]
     Indication: CORONARY ARTERIAL STENT INSERTION
     Dosage: 75 MG; AM; PO
     Route: 048
     Dates: start: 20060925, end: 20061003
  2. MORPHINE SULFATE [Concomitant]
  3. OXYCODONE HCL [Concomitant]
  4. PREGABALIN [Concomitant]
  5. ALPRAZOLAM [Concomitant]
  6. DULOXETINE [Concomitant]
  7. HYDROCHLORIDE [Concomitant]
  8. INSULIN GLARGINE [Concomitant]
  9. INSULIN LISPRO [Concomitant]
  10. GLYCERYL TRINITRATE [Concomitant]
  11. ROSUVASTATIN [Concomitant]
  12. DOCUSATE SODIUM [Concomitant]

REACTIONS (18)
  - AGITATION [None]
  - ANXIETY [None]
  - ASTHENIA [None]
  - BALANCE DISORDER [None]
  - CONTUSION [None]
  - DECREASED APPETITE [None]
  - DEPRESSION [None]
  - DIABETES MELLITUS INADEQUATE CONTROL [None]
  - DIABETIC NEUROPATHY [None]
  - DYSLIPIDAEMIA [None]
  - FEELING HOT [None]
  - HYPERHIDROSIS [None]
  - INTERVERTEBRAL DISC DEGENERATION [None]
  - LUNG DISORDER [None]
  - MALAISE [None]
  - RED BLOOD CELL ABNORMALITY [None]
  - SCOLIOSIS [None]
  - SURGERY [None]
